FAERS Safety Report 21390556 (Version 3)
Quarter: 2022Q4

REPORT INFORMATION
  Report Type: Other
  Country: US (occurrence: None)
  Receive Date: 20220929
  Receipt Date: 20221009
  Transmission Date: 20230113
  Serious: Yes (Death)
  Sender: FDA-Public Use
  Company Number: US-ROCHE-3189680

PATIENT
  Age: 84 Year
  Sex: Male

DRUGS (17)
  1. ESBRIET [Suspect]
     Active Substance: PIRFENIDONE
     Indication: Idiopathic pulmonary fibrosis
     Dosage: TAKE 1 TABLET BY MOUTH 3 TIMES A DAY
     Route: 048
  2. ESBRIET [Suspect]
     Active Substance: PIRFENIDONE
     Indication: Cerebral infarction
  3. NIACIN [Concomitant]
     Active Substance: NIACIN
  4. TAMSULOSIN [Concomitant]
     Active Substance: TAMSULOSIN
  5. VITAMIN C [Concomitant]
     Active Substance: ASCORBIC ACID
  6. FERROUS SULFATE [Concomitant]
     Active Substance: FERROUS SULFATE
  7. AMLODIPINE [Concomitant]
     Active Substance: AMLODIPINE BESYLATE
  8. VITAMIN D3 [Concomitant]
     Active Substance: CHOLECALCIFEROL
  9. SIMVASTATIN [Concomitant]
     Active Substance: SIMVASTATIN
  10. NITROSTAT [Concomitant]
     Active Substance: NITROGLYCERIN
  11. ASPIRIN [Concomitant]
     Active Substance: ASPIRIN
  12. EZETIMIBE [Concomitant]
     Active Substance: EZETIMIBE
  13. OMEPRAZOLE [Concomitant]
     Active Substance: OMEPRAZOLE
  14. ALPRAZOLAM [Concomitant]
     Active Substance: ALPRAZOLAM
  15. PREDNISOLONE [Concomitant]
     Active Substance: PREDNISOLONE
  16. METOPROLOL [Concomitant]
     Active Substance: METOPROLOL
  17. PAROXETINE [Concomitant]
     Active Substance: PAROXETINE

REACTIONS (1)
  - Death [Fatal]

NARRATIVE: CASE EVENT DATE: 20220927
